FAERS Safety Report 8345341-0 (Version None)
Quarter: 2012Q2

REPORT INFORMATION
  Report Type: 
  Country: None (occurrence: None)
  Receive Date: 20120508
  Receipt Date: 20120502
  Transmission Date: 20120825
  Serious: Yes (Other)
  Sender: FDA-Public Use
  Company Number: US-TEVA-330415USA

PATIENT
  Sex: Female
  Weight: 69.008 kg

DRUGS (9)
  1. PROGESTERONE [Suspect]
     Dates: start: 20120201, end: 20120201
  2. ESTRADIOL [Suspect]
     Indication: MENOPAUSAL SYMPTOMS
     Dosage: 0.5
     Route: 048
     Dates: start: 20120201, end: 20120201
  3. MEDROXYPROGESTERONE [Suspect]
     Indication: MENOPAUSAL SYMPTOMS
     Dosage: 0.45/1.5
     Route: 048
     Dates: end: 20120101
  4. ESTRADIOL [Suspect]
     Indication: MOOD SWINGS
  5. ESTRADIOL [Suspect]
     Indication: ANXIETY
  6. MEDROXYPROGESTERONE [Suspect]
     Indication: MOOD SWINGS
  7. ESTRADIOL [Suspect]
     Indication: HOT FLUSH
  8. MEDROXYPROGESTERONE [Suspect]
     Indication: ANXIETY
  9. MEDROXYPROGESTERONE [Suspect]
     Indication: HOT FLUSH

REACTIONS (4)
  - PAIN [None]
  - ARTHRITIS [None]
  - MOVEMENT DISORDER [None]
  - ARTHRALGIA [None]
